FAERS Safety Report 5775879-1 (Version None)
Quarter: 2008Q2

REPORT INFORMATION
  Report Type: 
  Country: None (occurrence: None)
  Receive Date: 20080617
  Receipt Date: 20080604
  Transmission Date: 20081010
  Serious: Yes (Life-Threatening, Hospitalization)
  Sender: FDA-Public Use
  Company Number: DE-ELI_LILLY_AND_COMPANY-DE200806000755

PATIENT
  Age: 44 Year
  Sex: Male

DRUGS (4)
  1. CYMBALTA [Suspect]
     Indication: VERTIGO
     Dosage: 60 MG, DAILY (1/D)
     Route: 048
     Dates: start: 20061101
  2. VASOMOTAL [Concomitant]
     Dosage: 16 MG, 3/D
     Route: 048
  3. IBUROFEN [Concomitant]
     Dosage: 600 MG, AS NEEDED
     Route: 048
  4. DELMUNO [Concomitant]
     Dosage: UNK, UNKNOWN
     Route: 065

REACTIONS (2)
  - HAEMOGLOBIN DECREASED [None]
  - SUICIDE ATTEMPT [None]
